FAERS Safety Report 12235339 (Version 2)
Quarter: 2016Q2

REPORT INFORMATION
  Report Type: Spontaneous
  Country: GB (occurrence: GB)
  Receive Date: 20160404
  Receipt Date: 20160419
  Transmission Date: 20160815
  Serious: Yes (Hospitalization)
  Sender: FDA-Public Use
  Company Number: GB-BAXTER-2016BAX016509

PATIENT
  Age: 79 Year
  Sex: Male

DRUGS (6)
  1. SODIUM CHLORIDE 0.9% INTRAVENOUS INFUSION BP [Suspect]
     Active Substance: SODIUM CHLORIDE
     Dosage: EVERY NIGHT OVER 8 HOURS
     Route: 058
     Dates: start: 20160322
  2. WATER FOR INJECTION [Suspect]
     Active Substance: WATER
     Dosage: EVERY NIGHT OVER 8 HOURS
     Route: 058
     Dates: start: 20160322
  3. SODIUM CHLORIDE 0.9% INTRAVENOUS INFUSION BP [Suspect]
     Active Substance: SODIUM CHLORIDE
     Indication: MEDICATION DILUTION
     Dosage: EVERY NIGHT OVER 8 HOURS
     Route: 058
     Dates: start: 20160307
  4. WATER FOR INJECTION [Suspect]
     Active Substance: WATER
     Indication: MEDICATION DILUTION
     Dosage: EVERY NIGHT OVER 8 HOURS
     Route: 058
     Dates: start: 20160307
  5. DESFERRIOXAMINE [Suspect]
     Active Substance: DEFEROXAMINE MESYLATE
     Indication: PRODUCT USED FOR UNKNOWN INDICATION
     Dosage: EVERY NIGHT OVER 8 HOURS
     Route: 058
     Dates: start: 20160307
  6. DESFERRIOXAMINE [Suspect]
     Active Substance: DEFEROXAMINE MESYLATE
     Dosage: EVERY NIGHT OVER 8 HOURS
     Route: 058
     Dates: start: 20160322

REACTIONS (2)
  - Decreased appetite [Unknown]
  - Dehydration [Unknown]

NARRATIVE: CASE EVENT DATE: 20160322
